FAERS Safety Report 19385883 (Version 1)
Quarter: 2021Q2

REPORT INFORMATION
  Report Type: Spontaneous
  Country: IT (occurrence: IT)
  Receive Date: 20210608
  Receipt Date: 20210608
  Transmission Date: 20210717
  Serious: Yes (Other)
  Sender: FDA-Public Use
  Company Number: IT-TEVA-2021-IT-1919913

PATIENT
  Age: 34 Year
  Sex: Female

DRUGS (6)
  1. FUROSEMIDE. [Concomitant]
     Active Substance: FUROSEMIDE
     Indication: ASCITES
     Route: 065
     Dates: start: 201807
  2. PREDNISONE. [Suspect]
     Active Substance: PREDNISONE
     Indication: AUTOIMMUNE HEPATITIS
     Dosage: 15 MILLIGRAM DAILY;
     Route: 065
     Dates: start: 201810, end: 201812
  3. PREDNISONE. [Suspect]
     Active Substance: PREDNISONE
     Dosage: 7.5 MILLIGRAM DAILY;
     Route: 065
     Dates: start: 201904, end: 201912
  4. AZATHIOPRINE. [Suspect]
     Active Substance: AZATHIOPRINE
     Dosage: 100 MILLIGRAM DAILY;
     Route: 065
     Dates: start: 201904, end: 201912
  5. POTASSIUM CANRENOATE [Concomitant]
     Active Substance: CANRENOATE POTASSIUM
     Indication: ASCITES
     Route: 065
     Dates: start: 201807
  6. AZATHIOPRINE. [Suspect]
     Active Substance: AZATHIOPRINE
     Indication: AUTOIMMUNE HEPATITIS
     Dosage: 50 MILLIGRAM DAILY;
     Route: 065
     Dates: start: 201812, end: 201904

REACTIONS (2)
  - Streptococcal urinary tract infection [Unknown]
  - Pneumococcal sepsis [Unknown]

NARRATIVE: CASE EVENT DATE: 201912
